FAERS Safety Report 7206301-6 (Version None)
Quarter: 2011Q1

REPORT INFORMATION
  Report Type: 
  Country: None (occurrence: None)
  Receive Date: 20110103
  Receipt Date: 20101229
  Transmission Date: 20110831
  Serious: Yes (Death)
  Sender: FDA-Public Use
  Company Number: PHHY2010CL87560

PATIENT
  Age: 87 Year
  Sex: Male

DRUGS (3)
  1. EXFORGE [Suspect]
     Indication: HYPERTENSION
     Dosage: 160/10 MG, ONE TABLET PER DAY
     Dates: start: 20100601
  2. TRAMAL [Concomitant]
  3. HORMONES [Concomitant]
     Dosage: UNK
     Dates: end: 20070101

REACTIONS (1)
  - DEATH [None]
